FAERS Safety Report 8283636-X (Version None)
Quarter: 2012Q2

REPORT INFORMATION
  Report Type: 
  Country: None (occurrence: None)
  Receive Date: 20120413
  Receipt Date: 20120409
  Transmission Date: 20120825
  Serious: Yes (Other)
  Sender: FDA-Public Use
  Company Number: US-PFIZER INC-2012089251

PATIENT
  Sex: Male
  Weight: 109 kg

DRUGS (2)
  1. VIAGRA [Suspect]
     Indication: ERECTILE DYSFUNCTION
     Dosage: 100 MG, AS NEEDED
     Route: 048
  2. OXYCODONE [Concomitant]
     Indication: PAIN
     Dosage: UNK

REACTIONS (2)
  - NEOPLASM MALIGNANT [None]
  - NEPHRECTOMY [None]
